FAERS Safety Report 17684318 (Version 1)
Quarter: 2020Q2

REPORT INFORMATION
  Report Type: Spontaneous
  Country: IT (occurrence: IT)
  Receive Date: 20200420
  Receipt Date: 20200420
  Transmission Date: 20200714
  Serious: Yes (Other)
  Sender: FDA-Public Use
  Company Number: IT-MYLANLABS-2020M1038423

PATIENT
  Sex: Male

DRUGS (2)
  1. EPIRUBICIN [Suspect]
     Active Substance: EPIRUBICIN
     Indication: ADJUVANT THERAPY
     Dosage: FIRST CHEMOTHERAPY CYCLE
     Route: 065
  2. HOLOXAN [Suspect]
     Active Substance: IFOSFAMIDE
     Indication: ADJUVANT THERAPY
     Dosage: FIRST CHEMOTHERAPY CYCLE
     Route: 065

REACTIONS (2)
  - Hypercreatininaemia [Unknown]
  - Thrombocytopenia [Unknown]
